FAERS Safety Report 20922881 (Version 1)
Quarter: 2022Q2

REPORT INFORMATION
  Report Type: Spontaneous
  Country: CN (occurrence: None)
  Receive Date: 20220607
  Receipt Date: 20220607
  Transmission Date: 20220721
  Serious: Yes (Other)
  Sender: FDA-Public Use
  Company Number: 2022A207374

PATIENT
  Age: 65 Year
  Sex: Male
  Weight: 65 kg

DRUGS (1)
  1. IMFINZI [Suspect]
     Active Substance: DURVALUMAB
     Indication: Small cell lung cancer extensive stage
     Dosage: 1500MG/CYCLE
     Route: 042
     Dates: start: 20210926

REACTIONS (1)
  - Myelosuppression [Unknown]
